FAERS Safety Report 18912792 (Version 3)
Quarter: 2021Q2

REPORT INFORMATION
  Report Type: Report from Study
  Country: US (occurrence: US)
  Receive Date: 20210218
  Receipt Date: 20210525
  Transmission Date: 20210717
  Serious: Yes (Hospitalization)
  Sender: FDA-Public Use
  Company Number: US-JNJFOC-20210124294

PATIENT
  Age: 76 Year
  Sex: Female

DRUGS (15)
  1. TRACLEER [Suspect]
     Active Substance: BOSENTAN
     Indication: PULMONARY ARTERIAL HYPERTENSION
     Route: 048
  2. ELIQUIS [Concomitant]
     Active Substance: APIXABAN
  3. MIDODRINE [Concomitant]
     Active Substance: MIDODRINE
  4. PREDNISONE. [Concomitant]
     Active Substance: PREDNISONE
  5. ARANESP [Concomitant]
     Active Substance: DARBEPOETIN ALFA
  6. FLUOCINONIDE. [Concomitant]
     Active Substance: FLUOCINONIDE
  7. LANSOPRAZOLE. [Concomitant]
     Active Substance: LANSOPRAZOLE
  8. DOXYCYCLINE HYCLATE. [Concomitant]
     Active Substance: DOXYCYCLINE HYCLATE
  9. TRACLEER [Suspect]
     Active Substance: BOSENTAN
     Route: 048
  10. HYDROCHLOROTHIAZIDE. [Concomitant]
     Active Substance: HYDROCHLOROTHIAZIDE
  11. BOSENTAN. [Suspect]
     Active Substance: BOSENTAN
  12. AMLODIPINE [Concomitant]
     Active Substance: AMLODIPINE BESYLATE
  13. QUINAPRIL. [Concomitant]
     Active Substance: QUINAPRIL
  14. ACYCLOVIR. [Concomitant]
     Active Substance: ACYCLOVIR
  15. CALCITRIOL. [Concomitant]
     Active Substance: CALCITRIOL

REACTIONS (11)
  - Feeling abnormal [Unknown]
  - Rehabilitation therapy [Not Recovered/Not Resolved]
  - Therapeutic response changed [Not Recovered/Not Resolved]
  - Fatigue [Not Recovered/Not Resolved]
  - Product dose omission issue [Recovered/Resolved]
  - Balance disorder [Unknown]
  - COVID-19 [Not Recovered/Not Resolved]
  - Illness [Not Recovered/Not Resolved]
  - Fall [Unknown]
  - Nausea [Unknown]
  - Dizziness [Unknown]

NARRATIVE: CASE EVENT DATE: 20210103
